FAERS Safety Report 23189878 (Version 2)
Quarter: 2024Q1

REPORT INFORMATION
  Report Type: Spontaneous
  Country: US (occurrence: US)
  Receive Date: 20231116
  Receipt Date: 20240227
  Transmission Date: 20240409
  Serious: Yes (Other)
  Sender: FDA-Public Use
  Company Number: US-GLAXOSMITHKLINE-US2023155446

PATIENT

DRUGS (2)
  1. ANORO ELLIPTA [Suspect]
     Active Substance: UMECLIDINIUM BROMIDE\VILANTEROL TRIFENATATE
     Indication: Chronic obstructive pulmonary disease
     Dosage: UNK, QD,62.5/25 MCG ONCE DAILY
  2. VENTOLIN HFA [Suspect]
     Active Substance: ALBUTEROL SULFATE
     Indication: Chronic obstructive pulmonary disease
     Dosage: 90 MG, Q6D

REACTIONS (6)
  - Lung neoplasm malignant [Unknown]
  - Dyspnoea [Unknown]
  - Product dose omission issue [Unknown]
  - Prescription drug used without a prescription [Unknown]
  - Inability to afford medication [Unknown]
  - Drug ineffective [Unknown]
